FAERS Safety Report 5232428-4 (Version None)
Quarter: 2007Q1

REPORT INFORMATION
  Report Type: 
  Country: None (occurrence: None)
  Receive Date: 20070207
  Receipt Date: 20070125
  Transmission Date: 20070707
  Serious: Yes (Hospitalization)
  Sender: FDA-Public Use
  Company Number: FR-BRISTOL-MYERS SQUIBB COMPANY-13663984

PATIENT
  Age: 60 Year
  Sex: Male

DRUGS (11)
  1. GLUCOPHAGE [Suspect]
     Indication: DIABETES MELLITUS NON-INSULIN-DEPENDENT
     Dates: end: 20061116
  2. APROVEL [Suspect]
     Indication: ESSENTIAL HYPERTENSION
     Route: 048
     Dates: end: 20061116
  3. LASIX [Suspect]
     Indication: ESSENTIAL HYPERTENSION
     Route: 048
     Dates: start: 20061116, end: 20061120
  4. ZYLORIC [Concomitant]
     Indication: GOUT
     Route: 048
     Dates: start: 20061116
  5. LEXOMIL [Concomitant]
     Indication: ANXIETY
     Route: 048
  6. SEROPRAM [Concomitant]
     Indication: DEPRESSION
     Route: 048
     Dates: start: 20061116
  7. EUPANTOL [Concomitant]
  8. FLECAINIDE ACETATE [Concomitant]
  9. PERFALGAN [Concomitant]
  10. MEPRONIZINE [Concomitant]
  11. PREVISCAN [Concomitant]

REACTIONS (1)
  - LACTIC ACIDOSIS [None]
